FAERS Safety Report 7791707-7 (Version None)
Quarter: 2011Q4

REPORT INFORMATION
  Report Type: 
  Country: None (occurrence: None)
  Receive Date: 20111003
  Receipt Date: 20110922
  Transmission Date: 20120403
  Serious: Yes (Life-Threatening, Hospitalization, Other)
  Sender: FDA-Public Use
  Company Number: DE-SANOFI-AVENTIS-2011SA048281

PATIENT
  Age: 52 Year
  Sex: Male
  Weight: 71.3 kg

DRUGS (4)
  1. THERAPEUTIC RADIOPHARMACEUTICALS [Suspect]
     Indication: RECTAL CANCER
     Dates: start: 20110511, end: 20110617
  2. OXALIPLATIN [Suspect]
     Route: 042
     Dates: start: 20110608, end: 20110608
  3. OXALIPLATIN [Suspect]
     Indication: RECTAL CANCER
     Route: 042
     Dates: start: 20110511, end: 20110511
  4. XELODA [Suspect]
     Indication: RECTAL CANCER
     Route: 048
     Dates: start: 20110511, end: 20110617

REACTIONS (4)
  - ILEUS [None]
  - SUTURE RUPTURE [None]
  - INFECTIOUS PERITONITIS [None]
  - WOUND INFECTION [None]
